FAERS Safety Report 8922175 (Version 1)
Quarter: 2012Q4

REPORT INFORMATION
  Report Type: Spontaneous
  Country: US (occurrence: None)
  Receive Date: 20121120
  Receipt Date: 20121120
  Transmission Date: 20130627
  Serious: Yes (Hospitalization)
  Sender: FDA-Public Use
  Company Number: None

PATIENT
  Sex: Female
  Weight: 68.04 kg

DRUGS (1)
  1. MIRENA IUD [Suspect]
     Indication: BIRTH CONTROL
     Dates: start: 201209, end: 2015

REACTIONS (13)
  - Anxiety [None]
  - Dizziness [None]
  - Vision blurred [None]
  - Haemorrhage [None]
  - Pruritus generalised [None]
  - Chills [None]
  - Insomnia [None]
  - Night sweats [None]
  - Pyrexia [None]
  - Hypoaesthesia [None]
  - Paraesthesia [None]
  - Vitamin D decreased [None]
  - Libido decreased [None]
